FAERS Safety Report 8021595-5 (Version None)
Quarter: 2012Q1

REPORT INFORMATION
  Report Type: 
  Country: None (occurrence: None)
  Receive Date: 20120104
  Receipt Date: 20111230
  Transmission Date: 20120608
  Serious: Yes (Other)
  Sender: FDA-Public Use
  Company Number: US-ABBOTT-11P-163-0856372-00

PATIENT
  Sex: Female
  Weight: 62.652 kg

DRUGS (2)
  1. HUMIRA [Suspect]
     Dates: start: 20111001
  2. HUMIRA [Suspect]
     Indication: CROHN'S DISEASE
     Dates: start: 20070101, end: 20100901

REACTIONS (7)
  - DIARRHOEA [None]
  - ANORECTAL DISCOMFORT [None]
  - FATIGUE [None]
  - CROHN'S DISEASE [None]
  - ABSCESS [None]
  - ANAL FISTULA [None]
  - WEIGHT DECREASED [None]
